FAERS Safety Report 21668634 (Version 1)
Quarter: 2022Q4

REPORT INFORMATION
  Report Type: Spontaneous
  Country: US (occurrence: US)
  Receive Date: 20221201
  Receipt Date: 20221201
  Transmission Date: 20230113
  Serious: No
  Sender: FDA-Public Use
  Company Number: US-SANOFI-01385751

PATIENT
  Sex: Male

DRUGS (1)
  1. DUPIXENT [Suspect]
     Active Substance: DUPILUMAB
     Indication: Nasal polyps

REACTIONS (1)
  - Palpitations [Unknown]
